FAERS Safety Report 22942827 (Version 7)
Quarter: 2024Q2

REPORT INFORMATION
  Report Type: Report from Study
  Country: US (occurrence: US)
  Receive Date: 20230914
  Receipt Date: 20240509
  Transmission Date: 20240716
  Serious: Yes (Hospitalization, Other)
  Sender: FDA-Public Use
  Company Number: US-ARGENX-2023-ARGX-US003001

PATIENT

DRUGS (3)
  1. VYVGART [Suspect]
     Active Substance: EFGARTIGIMOD ALFA-FCAB
     Indication: Myasthenia gravis
     Dosage: UNK
     Route: 042
     Dates: start: 20230821, end: 20231204
  2. VYVGART [Suspect]
     Active Substance: EFGARTIGIMOD ALFA-FCAB
     Dosage: 10 MG/KG
     Route: 042
  3. XYLOMETAZOLINE HYDROCHLORIDE [Concomitant]
     Active Substance: XYLOMETAZOLINE HYDROCHLORIDE
     Indication: Seasonal allergy
     Dosage: UNK
     Route: 065

REACTIONS (39)
  - Hospitalisation [Unknown]
  - Dyspnoea [Unknown]
  - Pneumonia [Not Recovered/Not Resolved]
  - Pleural effusion [Not Recovered/Not Resolved]
  - Cardiac failure congestive [Not Recovered/Not Resolved]
  - Respiratory syncytial virus infection [Not Recovered/Not Resolved]
  - Presyncope [Unknown]
  - Retching [Unknown]
  - Hypoglycaemia [Unknown]
  - Nausea [Unknown]
  - Asthenia [Unknown]
  - Confusional state [Unknown]
  - Movement disorder [Unknown]
  - Speech disorder [Unknown]
  - Hypotension [Unknown]
  - Heart rate decreased [Unknown]
  - Choking [Unknown]
  - Dehydration [Unknown]
  - Diabetes mellitus [Unknown]
  - Ankle fracture [Not Recovered/Not Resolved]
  - Pulmonary congestion [Unknown]
  - Loss of consciousness [Unknown]
  - Hypotension [Unknown]
  - Tinea infection [Unknown]
  - Weight decreased [Unknown]
  - Cough [Unknown]
  - Secretion discharge [Unknown]
  - Heat exhaustion [Unknown]
  - Malaise [Not Recovered/Not Resolved]
  - Eye discharge [Unknown]
  - Vision blurred [Unknown]
  - Fall [Unknown]
  - Catarrh [Unknown]
  - Tendon injury [Not Recovered/Not Resolved]
  - Vomiting [Unknown]
  - Nausea [Unknown]
  - Hypersensitivity [Unknown]
  - Lacrimation increased [Unknown]
  - White blood cell count increased [Unknown]

NARRATIVE: CASE EVENT DATE: 20231210
